FAERS Safety Report 5237210-X (Version None)
Quarter: 2007Q1

REPORT INFORMATION
  Report Type: 
  Country: None (occurrence: None)
  Receive Date: 20061208
  Receipt Date: 20050315
  Transmission Date: 20070707
  Serious: Yes (Other)
  Sender: FDA-Public Use
  Company Number: 2005UW04137

PATIENT
  Age: 75 Year
  Sex: Female
  Weight: 68.038 kg

DRUGS (5)
  1. CRESTOR [Suspect]
     Indication: BLOOD CHOLESTEROL INCREASED
     Dosage: 5 MG PO
     Route: 048
     Dates: start: 20040901, end: 20050101
  2. ATENOLOL [Concomitant]
  3. NORVASC [Concomitant]
  4. DIOVAN [Concomitant]
  5. VITAMINS [Concomitant]

REACTIONS (3)
  - ASTHENIA [None]
  - BURNING SENSATION [None]
  - MYALGIA [None]
